FAERS Safety Report 18687619 (Version 1)
Quarter: 2020Q4

REPORT INFORMATION
  Report Type: Spontaneous
  Country: US (occurrence: US)
  Receive Date: 20201230
  Receipt Date: 20201230
  Transmission Date: 20210114
  Serious: Yes (Hospitalization)
  Sender: FDA-Public Use
  Company Number: None

PATIENT
  Age: 68 Year
  Sex: Male

DRUGS (17)
  1. LOSARTAN 100 MG DAILY [Concomitant]
  2. CARVEDILOL 3.125 MG TWICE DAILY [Concomitant]
  3. HYDRALAZINE 50 MG THREE TIMES DAILY [Concomitant]
  4. FLUTICASONE 1 SPRAY EACH NOSTRIL DAILY [Concomitant]
  5. ROSUVASTATIN 5 MG DAILY [Concomitant]
  6. CHOLECALCIFEROL 1250 MG WEEKLY [Concomitant]
  7. CASIRIVIMAB. [Suspect]
     Active Substance: CASIRIVIMAB
     Indication: COVID-19
     Dosage: ?          OTHER FREQUENCY:ONCE;?
     Route: 042
     Dates: start: 20201229, end: 20201229
  8. IMDEVIMAB. [Suspect]
     Active Substance: IMDEVIMAB
     Indication: COVID-19
     Dosage: ?          OTHER FREQUENCY:ONCE;?
     Route: 042
     Dates: start: 20201229, end: 20201229
  9. ASPIRIN 81 MG DAILY [Concomitant]
  10. HYDROCHLOROTHIAZIDE 25 MG DAILY [Concomitant]
  11. SITAGLIPTIN 100 MG DAILY [Concomitant]
  12. LINAGLIPTIN 5 MG NIGHTLY [Concomitant]
  13. FAMOTIDINE 20 MG DAILY [Concomitant]
  14. CLOPIDOGREL 75 MG DAILY [Concomitant]
  15. LORATIDINE 10 MG DAILY [Concomitant]
  16. METFORMIN 100 MG TWICE DAILY [Concomitant]
  17. NIFEDIPINE 60 MG DAILY [Concomitant]

REACTIONS (5)
  - Chills [None]
  - Syncope [None]
  - Burning sensation [None]
  - Ischaemia [None]
  - Dizziness [None]

NARRATIVE: CASE EVENT DATE: 20201229
